FAERS Safety Report 11546008 (Version 2)
Quarter: 2015Q3

REPORT INFORMATION
  Report Type: Spontaneous
  Country: JP (occurrence: JP)
  Receive Date: 20150924
  Receipt Date: 20150928
  Transmission Date: 20151125
  Serious: Yes (Hospitalization)
  Sender: FDA-Public Use
  Company Number: JP-TEVA-596386ISR

PATIENT

DRUGS (2)
  1. BAL [Concomitant]
     Active Substance: DIMERCAPROL
  2. TRISENOX [Suspect]
     Active Substance: ARSENIC TRIOXIDE
     Route: 042

REACTIONS (1)
  - Hypoaesthesia [Recovering/Resolving]

NARRATIVE: CASE EVENT DATE: 20150905
